FAERS Safety Report 5634282-5 (Version None)
Quarter: 2008Q1

REPORT INFORMATION
  Report Type: 
  Country: None (occurrence: None)
  Receive Date: 20080131
  Receipt Date: 20071019
  Transmission Date: 20080703
  Serious: Yes (Hospitalization)
  Sender: FDA-Public Use
  Company Number: 163178USA

PATIENT
  Sex: Female

DRUGS (1)
  1. COPAXONE [Suspect]
     Indication: MULTIPLE SCLEROSIS
     Dosage: 20 MG, SUBCUTANEOUS
     Route: 058

REACTIONS (5)
  - CEREBROVASCULAR ACCIDENT [None]
  - DYSARTHRIA [None]
  - DYSPHAGIA [None]
  - HYPOAESTHESIA [None]
  - MULTIPLE SCLEROSIS RELAPSE [None]
